FAERS Safety Report 13382129 (Version 2)
Quarter: 2020Q1

REPORT INFORMATION
  Report Type: Spontaneous
  Country: CH (occurrence: CH)
  Receive Date: 20170329
  Receipt Date: 20200203
  Transmission Date: 20200409
  Serious: Yes (Hospitalization)
  Sender: FDA-Public Use
  Company Number: PHHY2017CH045074

PATIENT
  Age: 5 Year
  Sex: Female

DRUGS (8)
  1. MINIRIN [Concomitant]
     Active Substance: DESMOPRESSIN ACETATE
     Indication: PRODUCT USED FOR UNKNOWN INDICATION
     Dosage: 15 UG, QD (START OD ADMINISTRAION UNKNOWN)
     Route: 065
  2. PEPTAMEN [Concomitant]
     Dosage: 400 ML, QD
     Route: 065
  3. KEPPRA [Concomitant]
     Active Substance: LEVETIRACETAM
     Indication: PRODUCT USED FOR UNKNOWN INDICATION
     Dosage: 450 MG, UNK (250 MG-0-200MG) START OF ADMINISTRATION UNKNOWN
     Route: 065
  4. PEPTAMEN [Concomitant]
     Indication: PRODUCT USED FOR UNKNOWN INDICATION
     Dosage: 200 ML, BID
     Route: 065
  5. PROGRAF [Concomitant]
     Active Substance: TACROLIMUS
     Indication: PRODUCT USED FOR UNKNOWN INDICATION
     Dosage: 1 MG, BID (AT 0.5 MD BID SINCE JAN 2017 X TARGET 4-6UG/L)
     Route: 065
  6. CERTICAN [Suspect]
     Active Substance: EVEROLIMUS
     Indication: PROPHYLAXIS AGAINST TRANSPLANT REJECTION
     Dosage: 1 MG
     Route: 065
     Dates: start: 20170403
  7. CERTICAN [Suspect]
     Active Substance: EVEROLIMUS
     Indication: LIVER TRANSPLANT
     Dosage: 0.5 MG, BID (TARGET 4-6UG/L)
     Route: 048
     Dates: start: 20161021, end: 20170221
  8. PREDNISONE. [Concomitant]
     Active Substance: PREDNISONE
     Indication: APHTHOUS ULCER
     Dosage: 10 MG, QD ( START OF ADMINISTRAION UNKNOWN, SEVERING STARTED IN JAN)
     Route: 065

REACTIONS (6)
  - Accidental overdose [Recovered/Resolved]
  - Vomiting [Recovered/Resolved]
  - General physical health deterioration [Recovered/Resolved]
  - Diarrhoea [Recovered/Resolved]
  - Pyrexia [Recovered/Resolved]
  - Colitis ischaemic [Not Recovered/Not Resolved]

NARRATIVE: CASE EVENT DATE: 201612
